FAERS Safety Report 5624497-4 (Version None)
Quarter: 2008Q1

REPORT INFORMATION
  Report Type: 
  Country: None (occurrence: None)
  Receive Date: 20080213
  Receipt Date: 20080130
  Transmission Date: 20080703
  Serious: Yes (Hospitalization)
  Sender: FDA-Public Use
  Company Number: US-AMGEN-STX263322

PATIENT
  Sex: Female

DRUGS (1)
  1. ENBREL [Suspect]
     Indication: JUVENILE ARTHRITIS
     Route: 058
     Dates: start: 19990801

REACTIONS (5)
  - CONTUSION [None]
  - FOCAL GLOMERULOSCLEROSIS [None]
  - GLOMERULONEPHRITIS [None]
  - INJECTION SITE PAIN [None]
  - PYREXIA [None]
